FAERS Safety Report 6779478-4 (Version None)
Quarter: 2010Q2

REPORT INFORMATION
  Report Type: 
  Country: None (occurrence: None)
  Receive Date: 20100618
  Receipt Date: 20100608
  Transmission Date: 20101027
  Serious: Yes (Other)
  Sender: FDA-Public Use
  Company Number: GXKR2010GB06323

PATIENT
  Age: 32 Year
  Sex: Male

DRUGS (13)
  1. BLEOMYCIN (NGX) [Suspect]
     Indication: TERATOMA OF TESTIS
     Dosage: UNK
     Route: 065
     Dates: start: 19960101
  2. CISPLATIN [Suspect]
     Indication: TERATOMA OF TESTIS
     Dosage: UNK
     Route: 065
     Dates: start: 19960101
  3. CYCLOSPORINE [Suspect]
     Dosage: UNK
  4. CYCLOSPORINE [Suspect]
     Dosage: UNK
     Route: 065
     Dates: start: 19991201, end: 20030201
  5. CYTARABINE (NGX) [Suspect]
     Indication: ACUTE MYELOID LEUKAEMIA
     Route: 065
  6. ETOPOSIDE [Suspect]
     Indication: TERATOMA OF TESTIS
     Dosage: UNK
     Route: 065
     Dates: start: 19960101
  7. ETOPOSIDE [Suspect]
     Indication: ACUTE MYELOID LEUKAEMIA
  8. FLUDARABINE (NGX) [Suspect]
     Indication: ACUTE MYELOID LEUKAEMIA
     Dosage: UNK
     Route: 065
     Dates: start: 19991101
  9. PREDNISOLONE [Suspect]
     Route: 065
  10. CYCLOPHOSPHAMIDE [Suspect]
     Indication: ALLOGENIC BONE MARROW TRANSPLANTATION THERAPY
     Route: 065
  11. DAUNORUBICIN HCL [Suspect]
     Indication: ACUTE MYELOID LEUKAEMIA
     Dosage: UNK
     Route: 065
     Dates: start: 19980101
  12. MELPHALAN HYDROCHLORIDE [Suspect]
     Indication: STEM CELL TRANSPLANT
     Dosage: UNK
     Route: 065
     Dates: start: 20091201
  13. THERAPEUTIC RADIOPHARMACEUTICALS [Suspect]
     Indication: ALLOGENIC BONE MARROW TRANSPLANTATION THERAPY
     Route: 065

REACTIONS (5)
  - CRYOTHERAPY [None]
  - POROKERATOSIS [None]
  - SKIN LESION [None]
  - SKIN NEOPLASM EXCISION [None]
  - SWEAT GLAND TUMOUR [None]
